FAERS Safety Report 22122853 (Version 1)
Quarter: 2023Q1

REPORT INFORMATION
  Report Type: Spontaneous
  Country: US (occurrence: US)
  Receive Date: 20230322
  Receipt Date: 20230322
  Transmission Date: 20230418
  Serious: No
  Sender: FDA-Public Use
  Company Number: US-Apnar-000128

PATIENT
  Age: 55 Year
  Sex: Female
  Weight: 92.99 kg

DRUGS (2)
  1. BUPROPION HYDROCHLORIDE [Suspect]
     Active Substance: BUPROPION HYDROCHLORIDE
     Indication: Product used for unknown indication
     Dosage: STRENGTH: 100MG, 4 TABLETS A DAY
  2. NIRMATRELVIR\RITONAVIR [Suspect]
     Active Substance: NIRMATRELVIR\RITONAVIR
     Indication: COVID-19
     Dosage: 4 OF NIRMATRELVIR 150MG EACH, 2 RITONAVIR 100MG EACH

REACTIONS (1)
  - Drug effect less than expected [Unknown]
